FAERS Safety Report 8393577-5 (Version None)
Quarter: 2012Q2

REPORT INFORMATION
  Report Type: 
  Country: None (occurrence: None)
  Receive Date: 20120530
  Receipt Date: 20120516
  Transmission Date: 20120825
  Serious: Yes (Other)
  Sender: FDA-Public Use
  Company Number: DE-AMGEN-DEUSP2012032097

PATIENT
  Age: 46 Year
  Sex: Female

DRUGS (4)
  1. ENBREL [Suspect]
     Indication: PSORIATIC ARTHROPATHY
     Dosage: 50 MG, 1X/DAY
     Dates: start: 20100801
  2. METOPROLOL TARTRATE [Concomitant]
     Dosage: 100 MG, 1X/DAY
  3. LOSARTAN POTASSIUM [Concomitant]
     Dosage: 125 MG, 1X/DAY
  4. ASPIRIN [Concomitant]
     Dosage: 100 UNK, 1X/DAY

REACTIONS (3)
  - SOMNOLENCE [None]
  - PERTUSSIS [None]
  - NASOPHARYNGITIS [None]
